FAERS Safety Report 19396956 (Version 1)
Quarter: 2021Q2

REPORT INFORMATION
  Report Type: Report from Study
  Country: US (occurrence: US)
  Receive Date: 20210609
  Receipt Date: 20210609
  Transmission Date: 20210717
  Serious: Yes (Hospitalization, Other)
  Sender: FDA-Public Use
  Company Number: US-GILEAD-2021-0534231

PATIENT
  Age: 57 Year
  Sex: Female
  Weight: 96.1 kg

DRUGS (4)
  1. DILTIAZEM. [Concomitant]
     Active Substance: DILTIAZEM
  2. TYVASO [Suspect]
     Active Substance: TREPROSTINIL
     Indication: PULMONARY ARTERIAL HYPERTENSION
     Dosage: 18 UG/KG, QID
     Route: 055
     Dates: start: 20190207
  3. AMBRISENTAN [Suspect]
     Active Substance: AMBRISENTAN
     Indication: PULMONARY ARTERIAL HYPERTENSION
     Dosage: 10 MG, QD
     Route: 065
  4. TYVASO [Suspect]
     Active Substance: TREPROSTINIL
     Dosage: 54 UG/KG, QID
     Route: 055
     Dates: start: 20190207

REACTIONS (8)
  - Pulmonary hypertension [Unknown]
  - Right ventricular dysfunction [Unknown]
  - Dyspnoea exertional [Unknown]
  - Dyspnoea [Not Recovered/Not Resolved]
  - Cough [Unknown]
  - Headache [Unknown]
  - Tachycardia [Unknown]
  - Pneumonia [Unknown]

NARRATIVE: CASE EVENT DATE: 20210503
